FAERS Safety Report 7461236-9 (Version None)
Quarter: 2011Q2

REPORT INFORMATION
  Report Type: 
  Country: None (occurrence: None)
  Receive Date: 20110506
  Receipt Date: 20110426
  Transmission Date: 20111010
  Serious: Yes (Disabling, Other)
  Sender: FDA-Public Use
  Company Number: AR-AMGEN-ARGSP2011022654

PATIENT
  Sex: Male

DRUGS (1)
  1. ENBREL [Suspect]
     Indication: PRODUCT USED FOR UNKNOWN INDICATION
     Dosage: UNK

REACTIONS (6)
  - CEREBROVASCULAR ACCIDENT [None]
  - ILL-DEFINED DISORDER [None]
  - PANIC ATTACK [None]
  - PARKINSON'S DISEASE [None]
  - WALKING DISABILITY [None]
  - DEPRESSION [None]
